FAERS Safety Report 5510543-5 (Version None)
Quarter: 2007Q4

REPORT INFORMATION
  Report Type: 
  Country: None (occurrence: None)
  Receive Date: 20071108
  Receipt Date: 20071030
  Transmission Date: 20080405
  Serious: Yes (Disabling)
  Sender: FDA-Public Use
  Company Number: US-ELI_LILLY_AND_COMPANY-US200708004006

PATIENT
  Sex: Female

DRUGS (1)
  1. HUMALOG [Suspect]
     Indication: DIABETES MELLITUS
     Dates: start: 20000101

REACTIONS (8)
  - DIABETIC RETINOPATHY [None]
  - GLAUCOMA [None]
  - INTERVERTEBRAL DISC DEGENERATION [None]
  - MACULAR DEGENERATION [None]
  - MACULAR OEDEMA [None]
  - SLEEP APNOEA SYNDROME [None]
  - SPINAL COLUMN STENOSIS [None]
  - SYNCOPE [None]
